FAERS Safety Report 21264421 (Version 1)
Quarter: 2022Q3

REPORT INFORMATION
  Report Type: Spontaneous
  Country: GB (occurrence: GB)
  Receive Date: 20220829
  Receipt Date: 20220829
  Transmission Date: 20221027
  Serious: Yes (Death, Hospitalization)
  Sender: FDA-Public Use
  Company Number: None

PATIENT
  Age: 92 Year
  Sex: Female

DRUGS (10)
  1. DOXAZOSIN [Suspect]
     Active Substance: DOXAZOSIN MESYLATE
     Dosage: 1MG TABLETS 1 OM
  2. OMEPRAZOLE [Suspect]
     Active Substance: OMEPRAZOLE
     Dosage: 10MG GASTRO-RESISTANT CAPSULES 1 BD
  3. ALENDRONIC ACID [Concomitant]
     Active Substance: ALENDRONIC ACID
     Dosage: 70MG TABLETS 1 WEEKLY
  4. BISOPROLOL [Concomitant]
     Active Substance: BISOPROLOL
     Dosage: 2.5MG TABLETS 1 OM
  5. COCODAMOL [Concomitant]
     Active Substance: ACETAMINOPHEN\CODEINE PHOSPHATE
     Dosage: 15MG/500MG TABLETS 1-2 QDS PRN
  6. CHOLECALCIFEROL [Concomitant]
     Active Substance: CHOLECALCIFEROL
     Dosage: 20,000UNIT CAPSULES 1 MONTHLY
  7. FOLIC ACID [Concomitant]
     Active Substance: FOLIC ACID
     Dosage: 5MG TABLETS 1 OM
  8. LEVOTHYROXINE [Concomitant]
     Active Substance: LEVOTHYROXINE
     Dosage: 25MICROGRAM TABLETS 1 OM
  9. QUININE SULFATE [Concomitant]
     Active Substance: QUININE SULFATE
     Dosage: 300MG TABLETS 1 ON
  10. SILVER SULFADIAZENE [Concomitant]
     Active Substance: SILVER SULFADIAZINE
     Dosage: 1% CREAM APPLY OM PRN

REACTIONS (1)
  - Oedema [Fatal]
